FAERS Safety Report 6199596-1 (Version None)
Quarter: 2009Q2

REPORT INFORMATION
  Report Type: 
  Country: None (occurrence: None)
  Receive Date: 20090522
  Receipt Date: 20090518
  Transmission Date: 20091009
  Serious: Yes (Other)
  Sender: FDA-Public Use
  Company Number: D0060215A

PATIENT
  Sex: Female
  Weight: 60 kg

DRUGS (2)
  1. ELMENDOS [Suspect]
     Indication: DEPRESSION
     Route: 048
     Dates: start: 20081101
  2. OPIPRAMOL [Concomitant]
     Indication: INSOMNIA
     Dosage: 50MG AT NIGHT
     Route: 048

REACTIONS (2)
  - OEDEMA PERIPHERAL [None]
  - THROMBOCYTHAEMIA [None]
